FAERS Safety Report 16577774 (Version 1)
Quarter: 2019Q3

REPORT INFORMATION
  Report Type: Spontaneous
  Country: DE (occurrence: DE)
  Receive Date: 20190716
  Receipt Date: 20190716
  Transmission Date: 20191004
  Serious: Yes (Other)
  Sender: FDA-Public Use
  Company Number: DE-JNJFOC-20190706378

PATIENT
  Sex: Male

DRUGS (2)
  1. TORASEMID [Interacting]
     Active Substance: TORSEMIDE
     Indication: WALDENSTROM^S MACROGLOBULINAEMIA
     Route: 065
  2. IMBRUVICA [Suspect]
     Active Substance: IBRUTINIB
     Indication: WALDENSTROM^S MACROGLOBULINAEMIA
     Route: 048

REACTIONS (4)
  - Venous thrombosis [Unknown]
  - Drug interaction [Unknown]
  - Pain in extremity [Unknown]
  - Arthralgia [Unknown]
